FAERS Safety Report 11421943 (Version 8)
Quarter: 2017Q3

REPORT INFORMATION
  Report Type: Report from Study
  Country: US (occurrence: US)
  Receive Date: 20150827
  Receipt Date: 20170816
  Transmission Date: 20171127
  Serious: Yes (Hospitalization, Other)
  Sender: FDA-Public Use
  Company Number: US-AMGEN-USASL2015087797

PATIENT
  Age: 60 Year
  Sex: Male

DRUGS (8)
  1. METHOTREXATE. [Concomitant]
     Active Substance: METHOTREXATE
     Dosage: UNK
  2. ENBREL [Suspect]
     Active Substance: ETANERCEPT
     Indication: PSORIATIC ARTHROPATHY
     Dosage: 50 MG, QWK
     Route: 065
     Dates: start: 20141001
  3. HUMIRA [Suspect]
     Active Substance: ADALIMUMAB
     Indication: PRODUCT USED FOR UNKNOWN INDICATION
     Dosage: UNK
     Route: 065
  4. ENBREL [Suspect]
     Active Substance: ETANERCEPT
     Indication: PSORIASIS
     Dosage: UNK, QWK
     Route: 065
     Dates: start: 20160210
  5. ENBREL [Suspect]
     Active Substance: ETANERCEPT
     Dosage: UNK
     Route: 065
  6. ENBREL [Suspect]
     Active Substance: ETANERCEPT
     Dosage: UNK
     Route: 065
  7. OTEZLA [Concomitant]
     Active Substance: APREMILAST
     Dosage: UNK
  8. REMICADE [Suspect]
     Active Substance: INFLIXIMAB
     Indication: PRODUCT USED FOR UNKNOWN INDICATION
     Dosage: UNK
     Route: 065

REACTIONS (29)
  - Viral infection [Unknown]
  - Fatigue [Unknown]
  - Injection site coldness [Unknown]
  - Nasopharyngitis [Recovering/Resolving]
  - Skin plaque [Unknown]
  - Decreased immune responsiveness [Unknown]
  - Psoriatic arthropathy [Unknown]
  - Hepatic enzyme increased [Unknown]
  - Sleep disorder due to a general medical condition [Unknown]
  - Sinus disorder [Recovering/Resolving]
  - Mobility decreased [Recovering/Resolving]
  - Foot operation [Unknown]
  - Drug effect incomplete [Unknown]
  - Injection site bruising [Unknown]
  - Sinusitis [Unknown]
  - Blood pressure decreased [Unknown]
  - Coronary artery bypass [Unknown]
  - Blood pressure increased [Unknown]
  - Ankle operation [Unknown]
  - Headache [Unknown]
  - Feeling abnormal [Unknown]
  - Injection site haemorrhage [Unknown]
  - Injection site pain [Unknown]
  - Infection [Unknown]
  - Hypersensitivity [Unknown]
  - Malaise [Unknown]
  - Psoriasis [Not Recovered/Not Resolved]
  - Discomfort [Unknown]
  - Lethargy [Unknown]

NARRATIVE: CASE EVENT DATE: 2015
